FAERS Safety Report 24602363 (Version 1)
Quarter: 2024Q4

REPORT INFORMATION
  Report Type: Other
  Country: IT (occurrence: IT)
  Receive Date: 20241111
  Receipt Date: 20241111
  Transmission Date: 20250115
  Serious: Yes (Other)
  Sender: ALVOGEN
  Company Number: IT-ALVOGEN-2024095793

PATIENT
  Age: 75 Year
  Sex: Male

DRUGS (4)
  1. EXEMESTANE [Suspect]
     Active Substance: EXEMESTANE
     Indication: Breast cancer
  2. OXALIPLATIN [Suspect]
     Active Substance: OXALIPLATIN
     Indication: Colorectal cancer
  3. 5fluorouracile [Concomitant]
     Indication: Colorectal cancer
  4. CAPECITABINE [Concomitant]
     Active Substance: CAPECITABINE
     Indication: Colorectal cancer

REACTIONS (5)
  - Acute promyelocytic leukaemia [Recovered/Resolved]
  - Atrial fibrillation [Unknown]
  - Renal failure [Unknown]
  - Cardiac failure [Unknown]
  - Off label use [Unknown]
